FAERS Safety Report 7023921-2 (Version None)
Quarter: 2010Q4

REPORT INFORMATION
  Report Type: 
  Country: None (occurrence: None)
  Receive Date: 20101001
  Receipt Date: 20100920
  Transmission Date: 20110411
  Serious: Yes (Death, Hospitalization)
  Sender: FDA-Public Use
  Company Number: US-ELI_LILLY_AND_COMPANY-US201008008757

PATIENT
  Sex: Female

DRUGS (8)
  1. ZYPREXA [Suspect]
     Indication: BIPOLAR DISORDER
     Dosage: 5 MG, EACH MORNING
     Dates: start: 20100816
  2. LITHIUM [Concomitant]
     Dosage: 300 MG, EACH MORNING
  3. LITHIUM [Concomitant]
     Dosage: 600 MG, EACH EVENING
  4. LORAZEPAM [Concomitant]
     Dosage: 1 MG, EACH MORNING
  5. LORAZEPAM [Concomitant]
     Dosage: 0.5 MG, OTHER
  6. LORAZEPAM [Concomitant]
     Dosage: 1 MG, EACH EVENING
  7. WELLBUTRIN [Concomitant]
     Dosage: 300 MG, EACH MORNING
  8. ABILIFY [Concomitant]
     Dosage: 5 MG, EACH MORNING
     Dates: start: 20100309

REACTIONS (2)
  - CONDITION AGGRAVATED [None]
  - PULMONARY EMBOLISM [None]
